FAERS Safety Report 6925609-2 (Version None)
Quarter: 2010Q3

REPORT INFORMATION
  Report Type: 
  Country: None (occurrence: None)
  Receive Date: 20100810
  Receipt Date: 20100727
  Transmission Date: 20110219
  Serious: Yes (Other)
  Sender: FDA-Public Use
  Company Number: 016634

PATIENT

DRUGS (1)
  1. EQUASYM (EQUASYM XL) [Suspect]
     Dates: start: 20100101

REACTIONS (1)
  - ACUTE FEBRILE NEUTROPHILIC DERMATOSIS [None]
